FAERS Safety Report 4291052-0 (Version None)
Quarter: 2004Q1

REPORT INFORMATION
  Report Type: 
  Country: None (occurrence: None)
  Receive Date: 20040211
  Receipt Date: 20031103
  Transmission Date: 20041129
  Serious: No
  Sender: FDA-Public Use
  Company Number: US-GLAXOSMITHKLINE-A0432621A

PATIENT
  Age: 41 Year
  Sex: Female

DRUGS (3)
  1. PAXIL [Suspect]
     Dosage: 20MG PER DAY
     Route: 048
     Dates: start: 20030729, end: 20030901
  2. ADVAIR DISKUS 100/50 [Concomitant]
  3. ACCOLATE [Concomitant]

REACTIONS (4)
  - PRODUCTIVE COUGH [None]
  - SENSATION OF FOREIGN BODY [None]
  - SEXUAL DYSFUNCTION [None]
  - THIRST [None]
